FAERS Safety Report 7816740-8 (Version None)
Quarter: 2011Q4

REPORT INFORMATION
  Report Type: 
  Country: None (occurrence: None)
  Receive Date: 20111013
  Receipt Date: 20110930
  Transmission Date: 20120403
  Serious: Yes (Death, Other)
  Sender: FDA-Public Use
  Company Number: MC201100480

PATIENT

DRUGS (1)
  1. ANGIOMAX [Suspect]
     Indication: HEPARIN-INDUCED THROMBOCYTOPENIA

REACTIONS (2)
  - ISCHAEMIC STROKE [None]
  - OFF LABEL USE [None]
